FAERS Safety Report 20415755 (Version 2)
Quarter: 2022Q1

REPORT INFORMATION
  Report Type: Spontaneous
  Country: TW (occurrence: TW)
  Receive Date: 20220202
  Receipt Date: 20220322
  Transmission Date: 20220423
  Serious: Yes (Other)
  Sender: FDA-Public Use
  Company Number: TW-SA-2022SA026585

PATIENT
  Age: 44 Year
  Sex: Female

DRUGS (3)
  1. DOCETAXEL [Suspect]
     Active Substance: DOCETAXEL
     Indication: Invasive ductal breast carcinoma
     Dosage: UNK
  2. TRASTUZUMAB [Suspect]
     Active Substance: TRASTUZUMAB
     Indication: Invasive ductal breast carcinoma
  3. CARBOPLATIN [Concomitant]
     Active Substance: CARBOPLATIN
     Indication: Invasive ductal breast carcinoma

REACTIONS (5)
  - Toxic optic neuropathy [Recovering/Resolving]
  - Vision blurred [Recovering/Resolving]
  - Visual field defect [Recovering/Resolving]
  - Pupillary reflex impaired [Recovering/Resolving]
  - Optic discs blurred [Recovering/Resolving]
